FAERS Safety Report 18347280 (Version 1)
Quarter: 2020Q4

REPORT INFORMATION
  Report Type: Spontaneous
  Country: CN (occurrence: CN)
  Receive Date: 20201005
  Receipt Date: 20201005
  Transmission Date: 20210114
  Serious: Yes (Hospitalization)
  Sender: FDA-Public Use
  Company Number: CN-ELI_LILLY_AND_COMPANY-CN202009011485

PATIENT
  Sex: Female

DRUGS (1)
  1. FORSTEO 250UG/ML [Suspect]
     Active Substance: TERIPARATIDE
     Indication: OSTEOPOROSIS
     Dosage: 20 UG, DAILY
     Route: 058
     Dates: start: 20200817

REACTIONS (6)
  - Somnolence [Unknown]
  - Vomiting [Unknown]
  - Depressed level of consciousness [Unknown]
  - Blood calcium increased [Unknown]
  - Mental impairment [Unknown]
  - Nausea [Unknown]

NARRATIVE: CASE EVENT DATE: 20200824
